FAERS Safety Report 18414111 (Version 2)
Quarter: 2020Q4

REPORT INFORMATION
  Report Type: Spontaneous
  Country: JP (occurrence: JP)
  Receive Date: 20201022
  Receipt Date: 20201030
  Transmission Date: 20210114
  Serious: Yes (Other)
  Sender: FDA-Public Use
  Company Number: JP-ACCORD-205846

PATIENT
  Age: 81 Year
  Sex: Male

DRUGS (2)
  1. FLUOROURACIL. [Suspect]
     Active Substance: FLUOROURACIL
     Indication: GASTRIC CANCER
     Dosage: FOLLOWED 46-H CONTINUOUS INFUSION OF 2400 MG/M2? ON DAY 1; REPEATED EVERY 2 WEEKS
     Route: 040
  2. FOLINIC ACID [Suspect]
     Active Substance: LEUCOVORIN
     Indication: GASTRIC CANCER
     Dosage: 2-H LEUCOVORIN INFUSION

REACTIONS (4)
  - Hyperammonaemia [Recovered/Resolved]
  - Pneumonitis [Unknown]
  - Vomiting [Unknown]
  - Nausea [Unknown]
